FAERS Safety Report 25543728 (Version 4)
Quarter: 2025Q3

REPORT INFORMATION
  Report Type: Report from Study
  Country: US (occurrence: US)
  Receive Date: 20250711
  Receipt Date: 20250829
  Transmission Date: 20251021
  Serious: Yes (Other)
  Sender: ABBVIE
  Company Number: US-ABBVIE-6211191

PATIENT
  Age: 47 Year
  Sex: Female

DRUGS (11)
  1. QULIPTA [Suspect]
     Active Substance: ATOGEPANT
     Indication: Migraine
     Route: 048
  2. QULIPTA [Suspect]
     Active Substance: ATOGEPANT
     Indication: Migraine
     Route: 048
  3. QULIPTA [Suspect]
     Active Substance: ATOGEPANT
     Indication: Migraine
     Route: 048
     Dates: start: 20241201
  4. QULIPTA [Suspect]
     Active Substance: ATOGEPANT
     Indication: Migraine
     Route: 048
     Dates: start: 20250620
  5. QULIPTA [Suspect]
     Active Substance: ATOGEPANT
     Indication: Migraine
     Route: 048
     Dates: start: 20241220
  6. QULIPTA [Suspect]
     Active Substance: ATOGEPANT
     Indication: Migraine
     Route: 048
     Dates: start: 20241101
  7. QULIPTA [Suspect]
     Active Substance: ATOGEPANT
     Indication: Migraine
     Route: 048
     Dates: start: 20240503
  8. QULIPTA [Suspect]
     Active Substance: ATOGEPANT
     Indication: Migraine
     Route: 048
     Dates: start: 20241121
  9. PSYLLIUM [Concomitant]
     Active Substance: PLANTAGO SEED
     Indication: Product used for unknown indication
  10. BOTOX [Suspect]
     Active Substance: ONABOTULINUMTOXINA
     Indication: Product used for unknown indication
     Route: 065
     Dates: start: 20210201, end: 20210201
  11. ASPIRIN [Concomitant]
     Active Substance: ASPIRIN
     Indication: Product used for unknown indication

REACTIONS (24)
  - Artificial crown procedure [Not Recovered/Not Resolved]
  - Pain in extremity [Unknown]
  - Weight decreased [Unknown]
  - Pain [Unknown]
  - Radiculopathy [Unknown]
  - Decreased appetite [Unknown]
  - Product dispensing error [Unknown]
  - Speech disorder [Not Recovered/Not Resolved]
  - Hypoacusis [Not Recovered/Not Resolved]
  - Ear pain [Not Recovered/Not Resolved]
  - Injection site muscle weakness [Unknown]
  - Disease risk factor [Unknown]
  - Chronic obstructive pulmonary disease [Unknown]
  - Therapeutic response unexpected [Unknown]
  - Menopause [Not Recovered/Not Resolved]
  - Drug ineffective [Not Recovered/Not Resolved]
  - Back pain [Not Recovered/Not Resolved]
  - Malaise [Not Recovered/Not Resolved]
  - Incontinence [Not Recovered/Not Resolved]
  - Thinking abnormal [Unknown]
  - Disability [Not Recovered/Not Resolved]
  - Migraine [Not Recovered/Not Resolved]
  - Migraine [Recovered/Resolved]
  - Obsessive-compulsive disorder [Recovering/Resolving]

NARRATIVE: CASE EVENT DATE: 20241220
